FAERS Safety Report 24316349 (Version 2)
Quarter: 2024Q4

REPORT INFORMATION
  Report Type: Report from Study
  Country: CO (occurrence: CO)
  Receive Date: 20240913
  Receipt Date: 20241029
  Transmission Date: 20250115
  Serious: Yes (Hospitalization, Other)
  Sender: PFIZER
  Company Number: CO-TAKEDA-2024TUS023310

PATIENT
  Age: 33 Year
  Sex: Male
  Weight: 54 kg

DRUGS (3)
  1. ADCETRIS [Suspect]
     Active Substance: BRENTUXIMAB VEDOTIN
     Indication: Hodgkin^s disease
     Dosage: 65 MILLIGRAM EVERY 15 DAYS
     Route: 042
     Dates: start: 20240209
  2. ADCETRIS [Suspect]
     Active Substance: BRENTUXIMAB VEDOTIN
     Dosage: 68 MILLIGRAM EVERY 15 DAYS
     Route: 042
     Dates: end: 20240815
  3. ADCETRIS [Suspect]
     Active Substance: BRENTUXIMAB VEDOTIN
     Dosage: 65 MG
     Route: 042
     Dates: start: 20240308

REACTIONS (10)
  - Pulmonary mass [Not Recovered/Not Resolved]
  - Neck mass [Not Recovered/Not Resolved]
  - Dyspnoea [Not Recovered/Not Resolved]
  - Weight increased [Unknown]
  - Treatment noncompliance [Unknown]
  - Cough [Not Recovered/Not Resolved]
  - Dyspnoea [Not Recovered/Not Resolved]
  - Treatment failure [Unknown]
  - Incorrect dose administered [Unknown]
  - Product prescribing error [Unknown]

NARRATIVE: CASE EVENT DATE: 20240228
